FAERS Safety Report 15288592 (Version 1)
Quarter: 2018Q3

REPORT INFORMATION
  Report Type: Spontaneous
  Country: US (occurrence: US)
  Receive Date: 20180802
  Receipt Date: 20180802
  Transmission Date: 20181010
  Serious: Yes (Hospitalization)
  Sender: FDA-Public Use
  Company Number: None

PATIENT
  Sex: Male

DRUGS (1)
  1. CAPECITABINE. [Suspect]
     Active Substance: CAPECITABINE
     Indication: PANCREATIC CARCINOMA
     Dosage: ?          OTHER FREQUENCY:BID QD 21/28 DAYS;?
     Route: 048
     Dates: start: 20180628

REACTIONS (4)
  - Dysstasia [None]
  - Diarrhoea [None]
  - Dehydration [None]
  - Abdominal pain upper [None]
